FAERS Safety Report 15876335 (Version 1)
Quarter: 2019Q1

REPORT INFORMATION
  Report Type: Other
  Country: US (occurrence: US)
  Receive Date: 20190126
  Receipt Date: 20190126
  Transmission Date: 20190417
  Serious: No
  Sender: FDA-Public Use
  Company Number: US-ACORDA-ACO_155890_2018

PATIENT
  Age: 53 Year
  Sex: Female

DRUGS (1)
  1. AMPYRA [Suspect]
     Active Substance: DALFAMPRIDINE
     Indication: MULTIPLE SCLEROSIS
     Dosage: 10 MILLIGRAM, Q 12 HRS
     Route: 048
     Dates: start: 2016

REACTIONS (7)
  - Condition aggravated [Not Recovered/Not Resolved]
  - Pain [Unknown]
  - Contusion [Unknown]
  - Weight increased [Unknown]
  - Gait disturbance [Unknown]
  - Hypokinesia [Not Recovered/Not Resolved]
  - Foot fracture [Recovering/Resolving]

NARRATIVE: CASE EVENT DATE: 201801
